FAERS Safety Report 20220100 (Version 2)
Quarter: 2022Q1

REPORT INFORMATION
  Report Type: Spontaneous
  Country: US (occurrence: None)
  Receive Date: 20211222
  Receipt Date: 20220119
  Transmission Date: 20220424
  Serious: Yes (Hospitalization)
  Sender: FDA-Public Use
  Company Number: US-FARMAPROD-202112-2302

PATIENT
  Age: 87 Year
  Sex: Male

DRUGS (18)
  1. OXERVATE [Suspect]
     Active Substance: CENEGERMIN-BKBJ
     Indication: Neurotrophic keratopathy
     Route: 047
     Dates: start: 20211202
  2. CLOBETASOL EMOLLIENT [Concomitant]
  3. VOLTAREN ARTHRITIS PAIN [Concomitant]
     Active Substance: DICLOFENAC SODIUM
  4. NYSTATIN [Concomitant]
     Active Substance: NYSTATIN
  5. TRIAMCINOLONE ACETONIDE [Concomitant]
     Active Substance: TRIAMCINOLONE ACETONIDE
  6. METFORMIN ER GASTRIC [Concomitant]
  7. VALSARTAN [Concomitant]
     Active Substance: VALSARTAN
  8. CARVEDILOL [Concomitant]
     Active Substance: CARVEDILOL
  9. LASIX [Concomitant]
     Active Substance: FUROSEMIDE
  10. ALLOPURINOL [Concomitant]
     Active Substance: ALLOPURINOL
  11. FINASTERIDE [Concomitant]
     Active Substance: FINASTERIDE
  12. ASPIRIN [Concomitant]
     Active Substance: ASPIRIN
  13. TAMSULOSIN HYDROCHLORIDE [Concomitant]
     Active Substance: TAMSULOSIN HYDROCHLORIDE
  14. SIMVASTATIN [Concomitant]
     Active Substance: SIMVASTATIN
  15. MOXIFLOXACIN [Concomitant]
     Active Substance: MOXIFLOXACIN
  16. REFRESH CLASSIC [Concomitant]
     Active Substance: POLYVINYL ALCOHOL\POVIDONE
  17. ERYTHROMYCIN [Concomitant]
     Active Substance: ERYTHROMYCIN
  18. LUMIGAN [Concomitant]
     Active Substance: BIMATOPROST

REACTIONS (2)
  - Pneumonia [Unknown]
  - Dehydration [Unknown]

NARRATIVE: CASE EVENT DATE: 20211214
